FAERS Safety Report 6919975-1 (Version None)
Quarter: 2010Q3

REPORT INFORMATION
  Report Type: 
  Country: None (occurrence: None)
  Receive Date: 20100811
  Receipt Date: 20100728
  Transmission Date: 20110219
  Serious: Yes (Life-Threatening)
  Sender: FDA-Public Use
  Company Number: CN-MYLANLABS-2010S1013536

PATIENT
  Age: 1 Decade
  Sex: Female

DRUGS (4)
  1. CARBAMAZEPINE [Suspect]
     Indication: FRONTAL LOBE EPILEPSY
     Dosage: DOSAGE NOT STATED
     Route: 048
  2. PHENYTOIN [Suspect]
     Indication: FRONTAL LOBE EPILEPSY
     Dosage: DOSAGE NOT STATED
     Route: 048
  3. PHENOBARBITAL TAB [Suspect]
     Indication: FRONTAL LOBE EPILEPSY
     Dosage: DOSAGE NOT STATED
     Route: 048
  4. VALPROIC ACID [Concomitant]
     Indication: FRONTAL LOBE EPILEPSY
     Dosage: DOSAGE NOT STATED
     Route: 048

REACTIONS (1)
  - GRAND MAL CONVULSION [None]
